FAERS Safety Report 5371181-0 (Version None)
Quarter: 2007Q2

REPORT INFORMATION
  Report Type: 
  Country: None (occurrence: None)
  Receive Date: 20070622
  Receipt Date: 20070614
  Transmission Date: 20071010
  Serious: Yes (Other)
  Sender: FDA-Public Use
  Company Number: 2007AP000646

PATIENT
  Age: 29 Year
  Sex: Female

DRUGS (3)
  1. SERTRALINE HYDROCHLORIDE [Suspect]
     Indication: DEPRESSION
     Dosage: 200 MG; QD PO
     Route: 048
  2. MIRTAZAPINE [Concomitant]
  3. QUETIAPINE FUMARATE [Concomitant]

REACTIONS (1)
  - PHOTOSENSITIVITY REACTION [None]
